FAERS Safety Report 21830762 (Version 1)
Quarter: 2023Q1

REPORT INFORMATION
  Report Type: Spontaneous
  Country: FR (occurrence: FR)
  Receive Date: 20230106
  Receipt Date: 20230106
  Transmission Date: 20230417
  Serious: Yes (Other)
  Sender: FDA-Public Use
  Company Number: None

PATIENT
  Age: 78 Year
  Sex: Female
  Weight: 90 kg

DRUGS (6)
  1. CEFAZOLIN [Suspect]
     Active Substance: CEFAZOLIN
     Indication: General anaesthesia
     Dosage: 2 GRAM
     Route: 042
     Dates: start: 20221109, end: 20221109
  2. DEXAMETHASONE [Suspect]
     Active Substance: DEXAMETHASONE
     Indication: General anaesthesia
     Dosage: 8 MILLIGRAM
     Route: 042
     Dates: start: 20221109, end: 20221109
  3. PROPOFOL [Suspect]
     Active Substance: PROPOFOL
     Indication: General anaesthesia
     Dosage: 270 MILLIGRAM
     Route: 042
     Dates: start: 20221109, end: 20221109
  4. TRACRIUM [Suspect]
     Active Substance: ATRACURIUM BESYLATE
     Indication: General anaesthesia
     Dosage: 10 MILLIGRAM
     Route: 042
     Dates: start: 20221109, end: 20221109
  5. KETAMINE [Suspect]
     Active Substance: KETAMINE
     Indication: General anaesthesia
     Dosage: 20 MILLIGRAM
     Route: 042
     Dates: start: 20221109, end: 20221109
  6. SUFENTANIL [Suspect]
     Active Substance: SUFENTANIL
     Indication: General anaesthesia
     Dosage: 25 MICROGRAM
     Route: 042
     Dates: start: 20221109, end: 20221109

REACTIONS (1)
  - Hypotension [Recovered/Resolved]

NARRATIVE: CASE EVENT DATE: 20221109
